FAERS Safety Report 6533323-0 (Version None)
Quarter: 2010Q1

REPORT INFORMATION
  Report Type: 
  Country: None (occurrence: None)
  Receive Date: 20100111
  Receipt Date: 20100107
  Transmission Date: 20100710
  Serious: Yes (Death, Hospitalization)
  Sender: FDA-Public Use
  Company Number: A0838302A

PATIENT
  Age: 83 Year
  Sex: Female

DRUGS (6)
  1. LANOXIN [Suspect]
     Indication: CARDIAC FAILURE
     Dosage: .25MG PER DAY
     Route: 048
  2. ZOVIRAX [Suspect]
     Indication: HERPES SIMPLEX
     Dosage: 400MG AS REQUIRED
     Route: 048
  3. NEXIUM [Concomitant]
  4. ZETIA [Concomitant]
  5. PLAVIX [Concomitant]
  6. TOPROL-XL [Concomitant]

REACTIONS (2)
  - ADVERSE EVENT [None]
  - NEOPLASM MALIGNANT [None]
